FAERS Safety Report 4314335-4 (Version None)
Quarter: 2004Q1

REPORT INFORMATION
  Report Type: 
  Country: None (occurrence: None)
  Receive Date: 20040308
  Receipt Date: 20040223
  Transmission Date: 20041129
  Serious: Yes (Death)
  Sender: FDA-Public Use
  Company Number: USA-2004-0013310

PATIENT
  Age: 40 Year
  Sex: Male
  Weight: 59.9 kg

DRUGS (5)
  1. OXYCODONE HCL [Suspect]
  2. MORPHINE SULFATE [Suspect]
  3. DIAZEPAM [Suspect]
  4. METAXALONE [Suspect]
  5. CAFFEINE (CAFFEINE) [Suspect]

REACTIONS (9)
  - BRAIN OEDEMA [None]
  - BRONCHOPNEUMONIA [None]
  - CHOLESTASIS [None]
  - DRUG ABUSER [None]
  - HEPATIC CIRRHOSIS [None]
  - HEPATIC STEATOSIS [None]
  - PULMONARY CONGESTION [None]
  - PULMONARY OEDEMA [None]
  - SPLENOMEGALY [None]
